APPROVED DRUG PRODUCT: INDOMETHACIN
Active Ingredient: INDOMETHACIN
Strength: 75MG
Dosage Form/Route: CAPSULE, EXTENDED RELEASE;ORAL
Application: A204243 | Product #001
Applicant: AUROBINDO PHARMA LTD
Approved: Dec 27, 2016 | RLD: No | RS: No | Type: DISCN